FAERS Safety Report 16804244 (Version 1)
Quarter: 2019Q3

REPORT INFORMATION
  Report Type: Spontaneous
  Country: CA (occurrence: CA)
  Receive Date: 20190913
  Receipt Date: 20190913
  Transmission Date: 20191005
  Serious: Yes (Other)
  Sender: FDA-Public Use
  Company Number: CA-ACCORD-153592

PATIENT
  Age: 70 Year
  Sex: Male

DRUGS (5)
  1. RABEPRAZOLE/RABEPRAZOLE SODIUM [Concomitant]
  2. CITALOPRAM [Concomitant]
     Active Substance: CITALOPRAM HYDROBROMIDE
  3. ATORVASTATIN [Concomitant]
     Active Substance: ATORVASTATIN
  4. AMILORIDE [Concomitant]
     Active Substance: AMILORIDE
  5. HYDROCHLOROTHIAZIDE. [Suspect]
     Active Substance: HYDROCHLOROTHIAZIDE
     Indication: PRODUCT USED FOR UNKNOWN INDICATION

REACTIONS (2)
  - Interstitial granulomatous dermatitis [Recovered/Resolved]
  - Photosensitivity reaction [Recovered/Resolved]
